FAERS Safety Report 5670229-3 (Version None)
Quarter: 2008Q1

REPORT INFORMATION
  Report Type: 
  Country: None (occurrence: None)
  Receive Date: 20080314
  Receipt Date: 20080314
  Transmission Date: 20080703
  Serious: Yes (Hospitalization)
  Sender: FDA-Public Use
  Company Number: None

PATIENT
  Age: 60 Year
  Sex: Male
  Weight: 76.6579 kg

DRUGS (2)
  1. GEMCITABINE [Suspect]
     Indication: NEOPLASM MALIGNANT
     Dosage: 1500 MG/M2 EVERY 14 DAYS IV
     Route: 042
     Dates: start: 20080129, end: 20080226
  2. PEMETREXED [Suspect]
     Indication: NEOPLASM MALIGNANT
     Dosage: 500 MG/M2 EVERY 14 DAYS IV
     Route: 042
     Dates: start: 20080129, end: 20080226

REACTIONS (1)
  - CHEST PAIN [None]
